FAERS Safety Report 25003355 (Version 1)
Quarter: 2025Q1

REPORT INFORMATION
  Report Type: Spontaneous
  Country: CH (occurrence: CH)
  Receive Date: 20250224
  Receipt Date: 20250224
  Transmission Date: 20250408
  Serious: Yes (Other)
  Sender: CSL BEHRING
  Company Number: None

PATIENT
  Age: 79 Year
  Sex: Female

DRUGS (10)
  1. ALBUMIN HUMAN [Suspect]
     Active Substance: ALBUMIN HUMAN
     Indication: Product used for unknown indication
     Route: 040
     Dates: start: 20241210, end: 20241210
  2. ALBUMIN HUMAN [Suspect]
     Active Substance: ALBUMIN HUMAN
     Route: 040
     Dates: start: 20241210, end: 20241210
  3. ALBUMIN HUMAN [Suspect]
     Active Substance: ALBUMIN HUMAN
     Route: 040
     Dates: start: 20241210, end: 20241210
  4. FRAGMIN [Concomitant]
     Active Substance: DALTEPARIN SODIUM
     Indication: Thrombosis prophylaxis
     Dosage: 5000 IU, QD
     Route: 058
  5. Novalgin [Concomitant]
     Indication: Analgesic therapy
     Route: 040
     Dates: start: 20241209
  6. SIGNIFOR [Concomitant]
     Active Substance: PASIREOTIDE DIASPARTATE
     Indication: Product used for unknown indication
     Route: 040
     Dates: start: 20241209, end: 20241217
  7. Noradrenalin sintetica [Concomitant]
     Indication: Hypotension
     Route: 040
     Dates: start: 20241209, end: 20241212
  8. Noradrenalin sintetica [Concomitant]
     Indication: Cardiovascular disorder
     Dates: start: 20241210
  9. PANTOPRAZOLE SODIUM [Concomitant]
     Active Substance: PANTOPRAZOLE SODIUM
     Route: 040
  10. ACETAMINOPHEN [Concomitant]
     Active Substance: ACETAMINOPHEN
     Indication: Postoperative analgesia
     Route: 040
     Dates: start: 20241209

REACTIONS (5)
  - Delirium [Unknown]
  - Delirium [Unknown]
  - Infusion site swelling [Recovered/Resolved]
  - Infusion site discolouration [Recovered/Resolved]
  - Infusion site extravasation [Unknown]

NARRATIVE: CASE EVENT DATE: 20241210
